FAERS Safety Report 12094421 (Version 2)
Quarter: 2016Q1

REPORT INFORMATION
  Report Type: Spontaneous
  Country: US (occurrence: US)
  Receive Date: 20160219
  Receipt Date: 20160323
  Transmission Date: 20160526
  Serious: Yes (Hospitalization, Other)
  Sender: FDA-Public Use
  Company Number: US-BAXALTA-2016BLT000842

PATIENT
  Sex: Male
  Weight: 99.32 kg

DRUGS (12)
  1. BENADRYL [Concomitant]
     Active Substance: DIPHENHYDRAMINE HYDROCHLORIDE
     Indication: PROPHYLAXIS
     Dosage: 25-50 MG, PRIOR TO INFUSION
     Route: 048
     Dates: start: 20150430
  2. TYLENOL [Concomitant]
     Active Substance: ACETAMINOPHEN
     Indication: CHILLS
  3. LMX [Concomitant]
     Active Substance: LIDOCAINE
     Indication: THERAPEUTIC PROCEDURE
     Dosage: 2.5 %, CREAM, AS NEEDED
     Route: 061
     Dates: start: 20150430
  4. TYLENOL [Concomitant]
     Active Substance: ACETAMINOPHEN
     Indication: PYREXIA
  5. HYQVIA [Suspect]
     Active Substance: HUMAN IMMUNOGLOBULIN G\HYALURONIDASE RECOMBINANT HUMAN
     Indication: IMMUNODEFICIENCY
     Dosage: 60 G, EVERY 4 WK
     Route: 058
     Dates: start: 20150430
  6. BENADRYL [Concomitant]
     Active Substance: DIPHENHYDRAMINE HYDROCHLORIDE
     Indication: HYPERSENSITIVITY
  7. EPIPEN [Concomitant]
     Active Substance: EPINEPHRINE
     Indication: ANAPHYLACTIC REACTION
     Dosage: 0.3 MG, AS NEEDED
     Route: 030
     Dates: start: 20150430
  8. TYLENOL [Concomitant]
     Active Substance: ACETAMINOPHEN
     Indication: PAIN
     Dosage: 325-650 MG, Q4-6H, AS NEEDED
     Route: 048
     Dates: start: 20150430
  9. HYQVIA [Suspect]
     Active Substance: HUMAN IMMUNOGLOBULIN G\HYALURONIDASE RECOMBINANT HUMAN
     Indication: CONGENITAL HYPOGAMMAGLOBULINAEMIA
  10. TYLENOL [Concomitant]
     Active Substance: ACETAMINOPHEN
     Indication: PROPHYLAXIS
     Dosage: 325-650 MG, PRIOR TO INFUSION
     Route: 048
     Dates: start: 20150430
  11. BENADRYL [Concomitant]
     Active Substance: DIPHENHYDRAMINE HYDROCHLORIDE
     Indication: PRURITUS
     Dosage: 25-50 MG, Q4-6H, AS NEEDED
     Route: 048
     Dates: start: 20150430
  12. BENADRYL [Concomitant]
     Active Substance: DIPHENHYDRAMINE HYDROCHLORIDE
     Indication: RASH

REACTIONS (1)
  - Dengue fever [Recovered/Resolved]
